FAERS Safety Report 19918489 (Version 1)
Quarter: 2021Q4

REPORT INFORMATION
  Report Type: Spontaneous
  Country: CH (occurrence: CH)
  Receive Date: 20211004
  Receipt Date: 20211004
  Transmission Date: 20220303
  Serious: Yes (Other)
  Sender: FDA-Public Use
  Company Number: CH-TEVA-2021-CH-1960146

PATIENT
  Age: 74 Year
  Sex: Male

DRUGS (3)
  1. VINCRISTINE [Suspect]
     Active Substance: VINCRISTINE
     Indication: Hodgkin^s disease
     Dosage: 12 DOSES, 6 CYCLES
     Route: 065
     Dates: start: 20190910, end: 20200425
  2. DACARBAZINE [Suspect]
     Active Substance: DACARBAZINE
     Indication: Hodgkin^s disease
     Dosage: 12 DOSES, 6 CYCLES
     Route: 065
     Dates: start: 20190910, end: 20200425
  3. ADRIAMYCIN [Suspect]
     Active Substance: DOXORUBICIN HYDROCHLORIDE
     Indication: Hodgkin^s disease
     Dosage: 12 DOSES, 6 CYCLES
     Route: 065
     Dates: start: 20190910, end: 20200425

REACTIONS (3)
  - Neuropathy peripheral [Unknown]
  - Disease recurrence [Unknown]
  - Fatigue [Unknown]

NARRATIVE: CASE EVENT DATE: 20200401
